FAERS Safety Report 4988591-3 (Version None)
Quarter: 2006Q2

REPORT INFORMATION
  Report Type: 
  Country: None (occurrence: None)
  Receive Date: 20060502
  Receipt Date: 20060425
  Transmission Date: 20061013
  Serious: Yes (Other)
  Sender: FDA-Public Use
  Company Number: US-JNJFOC-20060102686

PATIENT
  Sex: Female
  Weight: 86.18 kg

DRUGS (5)
  1. ELMIRON [Suspect]
     Indication: CYSTITIS INTERSTITIAL
     Dosage: 2 TABLETS AT AM, AND 2 TABLETS AT PM
     Route: 048
  2. TOPROL-XL [Concomitant]
  3. COUMADIN [Concomitant]
  4. SYNTHROID [Concomitant]
  5. TOFRANIL [Concomitant]

REACTIONS (5)
  - CHEST PAIN [None]
  - HEART RATE IRREGULAR [None]
  - OEDEMA [None]
  - WHITE BLOOD CELL COUNT DECREASED [None]
  - WHITE BLOOD CELL MORPHOLOGY ABNORMAL [None]
